FAERS Safety Report 10815038 (Version 6)
Quarter: 2015Q2

REPORT INFORMATION
  Report Type: Spontaneous
  Country: JP (occurrence: JP)
  Receive Date: 20150218
  Receipt Date: 20150629
  Transmission Date: 20150821
  Serious: Yes (Life-Threatening, Hospitalization, Other)
  Sender: FDA-Public Use
  Company Number: JP-ABBVIE-15K-087-1346320-00

PATIENT
  Age: 14 Year
  Sex: Female
  Weight: 39 kg

DRUGS (4)
  1. HUMIRA [Suspect]
     Active Substance: ADALIMUMAB
     Route: 058
     Dates: start: 20140710, end: 20150109
  2. HUMIRA [Suspect]
     Active Substance: ADALIMUMAB
     Route: 058
     Dates: start: 20140624, end: 20140624
  3. HUMIRA [Suspect]
     Active Substance: ADALIMUMAB
     Indication: CROHN^S DISEASE
     Route: 058
     Dates: start: 20140611, end: 20140611
  4. AZANIN [Suspect]
     Active Substance: AZATHIOPRINE
     Indication: CROHN^S DISEASE
     Route: 048
     Dates: start: 20140611, end: 201409

REACTIONS (5)
  - Central nervous system lesion [Recovered/Resolved]
  - Natural killer-cell leukaemia [Unknown]
  - Hepatosplenomegaly [Unknown]
  - Lupus-like syndrome [Recovering/Resolving]
  - Demyelination [Unknown]

NARRATIVE: CASE EVENT DATE: 20141228
